FAERS Safety Report 4433536-8 (Version None)
Quarter: 2004Q3

REPORT INFORMATION
  Report Type: 
  Country: None (occurrence: None)
  Receive Date: 20040825
  Receipt Date: 20040816
  Transmission Date: 20050211
  Serious: Yes (Other)
  Sender: FDA-Public Use
  Company Number: 002429

PATIENT
  Age: 66 Year
  Sex: Female

DRUGS (4)
  1. MEDROXYPROGESTERONE ACETATE [Suspect]
     Dates: start: 19980201, end: 19980701
  2. MEDROXYPROGESTERONE ACETATE [Suspect]
     Dates: start: 19980701, end: 19990801
  3. MEDROXYPROGESTERONE ACETATE [Suspect]
     Dates: start: 19990801, end: 20000901
  4. PREMARIN [Suspect]
     Dates: start: 19980201, end: 19980701

REACTIONS (1)
  - BREAST CANCER FEMALE [None]
